FAERS Safety Report 18712595 (Version 1)
Quarter: 2021Q1

REPORT INFORMATION
  Report Type: Spontaneous
  Country: US (occurrence: US)
  Receive Date: 20210107
  Receipt Date: 20210107
  Transmission Date: 20210419
  Serious: Yes (Other)
  Sender: FDA-Public Use
  Company Number: US-009507513-2101USA000650

PATIENT
  Age: 75 Year
  Sex: Female

DRUGS (3)
  1. FOSAMAX [Suspect]
     Active Substance: ALENDRONATE SODIUM
     Indication: OSTEOPENIA
     Dosage: UNK, UNK
     Route: 065
     Dates: start: 2008
  2. MAALOX ADVANCED REGULAR STRENGTH MINT [Suspect]
     Active Substance: ALUMINUM HYDROXIDE\DIMETHICONE\MAGNESIUM HYDROXIDE
     Indication: ARTHRALGIA
     Dosage: 3 TSP, PRN
     Route: 048
     Dates: start: 2010
  3. MAALOX ADVANCED REGULAR STRENGTH MINT [Suspect]
     Active Substance: ALUMINUM HYDROXIDE\DIMETHICONE\MAGNESIUM HYDROXIDE
     Dosage: 2 (UNITS NOT REPORTED), QD; 6 TSP, BID, PRN
     Route: 048
     Dates: start: 2010

REACTIONS (6)
  - Tooth loss [Recovered/Resolved]
  - Expired product administered [Unknown]
  - Overdose [Unknown]
  - Product use in unapproved indication [Unknown]
  - Bone loss [Not Recovered/Not Resolved]
  - Therapeutic response unexpected [Unknown]

NARRATIVE: CASE EVENT DATE: 2010
